FAERS Safety Report 9729459 (Version 1)
Quarter: 2013Q4

REPORT INFORMATION
  Report Type: Spontaneous
  Country: US (occurrence: US)
  Receive Date: 20131204
  Receipt Date: 20131204
  Transmission Date: 20140711
  Serious: No
  Sender: FDA-Public Use
  Company Number: US-GILEAD-2009-0021541

PATIENT
  Sex: Female
  Weight: 95.25 kg

DRUGS (11)
  1. LETAIRIS [Suspect]
     Indication: PULMONARY ARTERIAL HYPERTENSION
     Route: 048
     Dates: start: 20090406
  2. INDAPAMIDE [Concomitant]
  3. TRANDOLAPRIL [Concomitant]
  4. ECOTRIN [Concomitant]
  5. ADVAIR [Concomitant]
  6. SPIRIVA [Concomitant]
  7. OXYGEN [Concomitant]
  8. PEPCID AC [Concomitant]
  9. PREVACID [Concomitant]
  10. CENTRUM SILVER [Concomitant]
  11. VITAMIN D [Concomitant]

REACTIONS (1)
  - Local swelling [Unknown]
